FAERS Safety Report 11405776 (Version 2)
Quarter: 2015Q3

REPORT INFORMATION
  Report Type: Spontaneous
  Country: US (occurrence: US)
  Receive Date: 20150821
  Receipt Date: 20150821
  Transmission Date: 20151125
  Serious: Yes (Hospitalization, Other)
  Sender: FDA-Public Use
  Company Number: US-GLAXOSMITHKLINE-US2015120033

PATIENT
  Sex: Male

DRUGS (2)
  1. VENTOLIN HFA [Suspect]
     Active Substance: ALBUTEROL SULFATE
     Indication: CHRONIC OBSTRUCTIVE PULMONARY DISEASE
     Dosage: 3 PUFF(S), PRN
     Route: 055
  2. IRON [Concomitant]
     Active Substance: IRON

REACTIONS (3)
  - Pulmonary oedema [Recovering/Resolving]
  - Inappropriate schedule of drug administration [Unknown]
  - Pericardial effusion [Recovering/Resolving]
